FAERS Safety Report 5574300-6 (Version None)
Quarter: 2007Q4

REPORT INFORMATION
  Report Type: 
  Country: None (occurrence: None)
  Receive Date: 20071227
  Receipt Date: 20071218
  Transmission Date: 20080405
  Serious: Yes (Other)
  Sender: FDA-Public Use
  Company Number: US-BAYER-US-2007-042394

PATIENT
  Age: 23 Year
  Sex: Female
  Weight: 105 kg

DRUGS (4)
  1. MIRENA [Suspect]
     Indication: CONTRACEPTION
     Route: 015
     Dates: start: 20071023, end: 20071023
  2. PERCOCET [Concomitant]
     Indication: ABDOMINAL PAIN
  3. VICODIN [Concomitant]
  4. CITALOPRAM HYDROBROMIDE [Concomitant]
     Route: 048

REACTIONS (1)
  - IUD MIGRATION [None]
